FAERS Safety Report 5307840-5 (Version None)
Quarter: 2007Q1

REPORT INFORMATION
  Report Type: 
  Country: None (occurrence: None)
  Receive Date: 20070201
  Receipt Date: 20061205
  Transmission Date: 20070707
  Serious: No
  Sender: FDA-Public Use
  Company Number: 2006PV026420

PATIENT
  Age: 68 Year
  Sex: Male
  Weight: 102.0593 kg

DRUGS (4)
  1. BYETTA [Suspect]
     Indication: DIABETES MELLITUS NON-INSULIN-DEPENDENT
     Dosage: 5  MCG;BID; SC
     Route: 058
     Dates: start: 20061119
  2. BYETTA [Suspect]
     Indication: WEIGHT DECREASED
     Dosage: 5  MCG;BID; SC
     Route: 058
     Dates: start: 20061119
  3. METFORMIN HCL [Concomitant]
  4. GLIMEPIRIDE [Concomitant]

REACTIONS (4)
  - BLOOD GLUCOSE INCREASED [None]
  - DIARRHOEA [None]
  - INJECTION SITE BRUISING [None]
  - NAUSEA [None]
